FAERS Safety Report 6725719-9 (Version None)
Quarter: 2010Q2

REPORT INFORMATION
  Report Type: 
  Country: None (occurrence: None)
  Receive Date: 20100514
  Receipt Date: 20100511
  Transmission Date: 20101027
  Serious: Yes (Death)
  Sender: FDA-Public Use
  Company Number: US-GILEAD-2010-0028926

PATIENT
  Sex: Male
  Weight: 167.98 kg

DRUGS (12)
  1. LETAIRIS [Suspect]
     Indication: PULMONARY ARTERIAL HYPERTENSION
     Route: 048
     Dates: start: 20080409, end: 20100503
  2. COREG [Concomitant]
  3. DIOVAN [Concomitant]
  4. SYMBICORT [Concomitant]
  5. PREDNISONE [Concomitant]
  6. AMOXICILLIN [Concomitant]
  7. ALLOPURINOL [Concomitant]
  8. ALPRAZOLAM [Concomitant]
  9. LIBRIUM [Concomitant]
  10. NEXIUM [Concomitant]
  11. TESSALON [Concomitant]
  12. DAILY MULTIVITAMIN [Concomitant]

REACTIONS (1)
  - COMPLETED SUICIDE [None]
